FAERS Safety Report 10604674 (Version 1)
Quarter: 2014Q4

REPORT INFORMATION
  Report Type: Spontaneous
  Country: US (occurrence: US)
  Receive Date: 20141124
  Receipt Date: 20141124
  Transmission Date: 20150529
  Serious: No
  Sender: FDA-Public Use
  Company Number: US-SA-2014SA072664

PATIENT

DRUGS (1)
  1. RENVELA [Suspect]
     Active Substance: SEVELAMER CARBONATE
     Indication: PRODUCT USED FOR UNKNOWN INDICATION
     Dosage: 800MG TABLET, 2-3 TABLETS WITH MEALS AND 2 TABLETS WITH SNACKS AS NEEDED
     Route: 048

REACTIONS (1)
  - Diarrhoea [Unknown]
